FAERS Safety Report 21164144 (Version 4)
Quarter: 2022Q3

REPORT INFORMATION
  Report Type: Spontaneous
  Country: FR (occurrence: FR)
  Receive Date: 20220803
  Receipt Date: 20220923
  Transmission Date: 20221027
  Serious: Yes (Other)
  Sender: FDA-Public Use
  Company Number: None

PATIENT
  Age: 26 Year
  Sex: Male

DRUGS (11)
  1. PANTOPRAZOLE [Suspect]
     Active Substance: PANTOPRAZOLE
     Indication: Product used for unknown indication
     Dosage: DURATION : 4 DAYS
     Route: 065
     Dates: start: 20220625, end: 20220629
  2. KETOPROFEN [Suspect]
     Active Substance: KETOPROFEN
     Indication: Product used for unknown indication
     Dosage: DURATION : 1 DAY
     Route: 065
     Dates: start: 20220625, end: 20220625
  3. ACETAMINOPHEN [Suspect]
     Active Substance: ACETAMINOPHEN
     Indication: Pain
     Dosage: DURATION : 4 DAYS
     Route: 065
     Dates: start: 20220625, end: 20220629
  4. REMIFENTANIL HYDROCHLORIDE [Suspect]
     Active Substance: REMIFENTANIL HYDROCHLORIDE
     Indication: Sedation
     Dosage: DURATION : 1 DAY
     Route: 065
     Dates: start: 20220625, end: 20220625
  5. TRANEXAMIC ACID [Suspect]
     Active Substance: TRANEXAMIC ACID
     Indication: Product used for unknown indication
     Dosage: DURATION : 1 DAY
     Route: 065
     Dates: start: 20220625, end: 20220625
  6. ATARAX [Suspect]
     Active Substance: HYDROXYZINE HYDROCHLORIDE
     Indication: Product used for unknown indication
     Dosage: DURATION : 4 DAYS
     Route: 065
     Dates: start: 20220625, end: 20220629
  7. MORPHINE [Suspect]
     Active Substance: MORPHINE
     Indication: Pain
     Dosage: DURATION : 4 DAYS
     Dates: start: 20220625, end: 20220629
  8. OMNIPAQUE [Suspect]
     Active Substance: IOHEXOL
     Indication: Computerised tomogram
     Dosage: FREQUENCY TIME : 1 TOTAL, DURATION : 1 DAY, UNIT DOSE: 350 MG
     Route: 065
     Dates: start: 20220625, end: 20220625
  9. PROPOFOL [Suspect]
     Active Substance: PROPOFOL
     Indication: Sedation
     Dosage: DURATION : 1 DAY
     Route: 065
     Dates: start: 20220625, end: 20220625
  10. LOVENOX [Suspect]
     Active Substance: ENOXAPARIN SODIUM
     Indication: Thrombosis prophylaxis
     Dosage: DURATION : 4 DAYS
     Route: 065
     Dates: start: 20220625, end: 20220629
  11. ACUPAN [Suspect]
     Active Substance: NEFOPAM HYDROCHLORIDE
     Indication: Pain
     Dosage: DURATION : 4 DAYS
     Route: 065
     Dates: start: 20220625, end: 20220629

REACTIONS (2)
  - Rash maculo-papular [Recovered/Resolved]
  - Rash pustular [Recovered/Resolved]

NARRATIVE: CASE EVENT DATE: 20220629
